FAERS Safety Report 11318781 (Version 1)
Quarter: 2015Q3

REPORT INFORMATION
  Report Type: Spontaneous
  Country: US (occurrence: US)
  Receive Date: 20150729
  Receipt Date: 20150729
  Transmission Date: 20151125
  Serious: Yes (Other)
  Sender: FDA-Public Use
  Company Number: US-009507513-1507USA009127

PATIENT
  Sex: Female

DRUGS (3)
  1. FLUOXETINE [Suspect]
     Active Substance: FLUOXETINE\FLUOXETINE HYDROCHLORIDE
     Dosage: UNK
  2. LYRICA [Suspect]
     Active Substance: PREGABALIN
     Dosage: 1 PILL, TID; 1 PILL IN THE MORNING, 1 PILL IN THE NOON, 1 PILL AT BEDTIME
     Route: 048
     Dates: start: 20150519, end: 20150521
  3. LISINOPRIL. [Suspect]
     Active Substance: LISINOPRIL
     Dosage: UNK
     Route: 048

REACTIONS (8)
  - Visual field defect [Unknown]
  - Homicidal ideation [Unknown]
  - Sciatica [Recovered/Resolved]
  - Thinking abnormal [Unknown]
  - Depression [Recovered/Resolved]
  - Agitation [Unknown]
  - Panic attack [Recovered/Resolved]
  - Anger [Unknown]

NARRATIVE: CASE EVENT DATE: 201504
